FAERS Safety Report 22324497 (Version 1)
Quarter: 2023Q2

REPORT INFORMATION
  Report Type: Spontaneous
  Country: US (occurrence: None)
  Receive Date: 20230515
  Receipt Date: 20230515
  Transmission Date: 20230721
  Serious: Yes (Hospitalization)
  Sender: FDA-Public Use
  Company Number: None

PATIENT
  Age: 67 Year
  Sex: Female
  Weight: 70.76 kg

DRUGS (15)
  1. CAPECITABINE [Suspect]
     Active Substance: CAPECITABINE
     Indication: Breast cancer female
     Dosage: OTHER QUANTITY : 1500-2000;?FREQUENCY : TWICE A DAY;?
     Route: 048
     Dates: start: 20230407
  2. ALENDRONATE [Concomitant]
     Active Substance: ALENDRONATE SODIUM
  3. CLARITIN [Concomitant]
     Active Substance: LORATADINE
  4. COZAAR [Concomitant]
     Active Substance: LOSARTAN POTASSIUM
  5. IBUPROFEN [Concomitant]
     Active Substance: IBUPROFEN
  6. VITAMINS [Concomitant]
     Active Substance: VITAMINS
  7. DIAZEPAM [Concomitant]
     Active Substance: DIAZEPAM
  8. DIPHENHYDRAMINE [Concomitant]
     Active Substance: DIPHENHYDRAMINE
  9. FLONASE [Concomitant]
     Active Substance: FLUTICASONE PROPIONATE
  10. GABAPENTIN [Concomitant]
     Active Substance: GABAPENTIN
  11. LEXAPRO [Concomitant]
     Active Substance: ESCITALOPRAM OXALATE
  12. METHOCARBAMOL [Concomitant]
     Active Substance: METHOCARBAMOL
  13. PROCHLORPERAZINE [Concomitant]
     Active Substance: PROCHLORPERAZINE
  14. TYLENOL [Concomitant]
     Active Substance: ACETAMINOPHEN
  15. XANAX [Concomitant]
     Active Substance: ALPRAZOLAM

REACTIONS (4)
  - Diarrhoea [None]
  - Shoulder fracture [None]
  - Fatigue [None]
  - Palmar-plantar erythrodysaesthesia syndrome [None]

NARRATIVE: CASE EVENT DATE: 20230511
